FAERS Safety Report 10079661 (Version 1)
Quarter: 2014Q2

REPORT INFORMATION
  Report Type: Spontaneous
  Country: US (occurrence: US)
  Receive Date: 20140415
  Receipt Date: 20140415
  Transmission Date: 20141212
  Serious: No
  Sender: FDA-Public Use
  Company Number: US-BAUSCH-BL-2014-001170

PATIENT
  Age: 70 Year
  Sex: Female

DRUGS (2)
  1. LOTEMAX (LOTEPREDNOL ETABONATE OPHTHALMIC GEL 0.5%) [Suspect]
     Indication: SUPERFICIAL INJURY OF EYE
     Dosage: ONE DROP IN BOTH EYES
     Route: 047
     Dates: start: 201402
  2. BLINK EYE DROPS [Concomitant]
     Indication: PRODUCT USED FOR UNKNOWN INDICATION
     Dosage: UNKNOWN
     Route: 065

REACTIONS (1)
  - Medication residue present [Not Recovered/Not Resolved]
